FAERS Safety Report 16341461 (Version 3)
Quarter: 2019Q3

REPORT INFORMATION
  Report Type: Report from Study
  Country: None (occurrence: US)
  Receive Date: 20190522
  Receipt Date: 20190710
  Transmission Date: 20191004
  Serious: Yes (Other)
  Sender: FDA-Public Use
  Company Number: US-ABBVIE-19K-163-2787942-00

PATIENT
  Age: 77 Year
  Sex: Male
  Weight: 81.27 kg

DRUGS (16)
  1. DACOGEN [Suspect]
     Active Substance: DECITABINE
     Route: 042
  2. VENETOCLAX. [Suspect]
     Active Substance: VENETOCLAX
     Route: 048
  3. DACOGEN [Suspect]
     Active Substance: DECITABINE
     Route: 042
     Dates: start: 20190429
  4. DECITABINE. [Suspect]
     Active Substance: DECITABINE
     Indication: ACUTE MYELOID LEUKAEMIA
     Route: 065
  5. VENETOCLAX. [Suspect]
     Active Substance: VENETOCLAX
     Route: 048
     Dates: start: 20181208, end: 20190329
  6. DACOGEN [Suspect]
     Active Substance: DECITABINE
     Indication: ACUTE MYELOID LEUKAEMIA
     Dosage: DAYS 1-5 OF EACH 28-DAY CYCLE
     Route: 042
     Dates: start: 20181205, end: 20190329
  7. DACOGEN [Suspect]
     Active Substance: DECITABINE
     Route: 042
     Dates: start: 20190429
  8. VENETOCLAX. [Suspect]
     Active Substance: VENETOCLAX
     Indication: ACUTE MYELOID LEUKAEMIA
     Route: 048
     Dates: start: 20181205, end: 20181208
  9. DACOGEN [Suspect]
     Active Substance: DECITABINE
     Route: 042
     Dates: start: 20181228
  10. AZACITIDINE. [Concomitant]
     Active Substance: AZACITIDINE
     Indication: PRODUCT USED FOR UNKNOWN INDICATION
  11. VENETOCLAX. [Suspect]
     Active Substance: VENETOCLAX
     Dosage: STARTED WITH 100MG AND TITRATED TO 400
     Route: 048
     Dates: start: 20181204, end: 20181204
  12. VENETOCLAX. [Suspect]
     Active Substance: VENETOCLAX
     Route: 048
     Dates: start: 20181204, end: 20181204
  13. VENETOCLAX. [Suspect]
     Active Substance: VENETOCLAX
     Route: 048
     Dates: start: 20181206, end: 201904
  14. VENETOCLAX. [Suspect]
     Active Substance: VENETOCLAX
     Route: 048
     Dates: start: 20190103
  15. VENETOCLAX. [Suspect]
     Active Substance: VENETOCLAX
     Route: 048
     Dates: start: 20181205, end: 20181205
  16. VENETOCLAX. [Suspect]
     Active Substance: VENETOCLAX
     Route: 048
     Dates: start: 201904

REACTIONS (8)
  - Bone marrow failure [Unknown]
  - Platelet count decreased [Not Recovered/Not Resolved]
  - Lymphocyte count increased [Unknown]
  - Off label use [Unknown]
  - White blood cell count abnormal [Unknown]
  - Bone marrow disorder [Not Recovered/Not Resolved]
  - Neutrophil count decreased [Unknown]
  - Acute myeloid leukaemia [Unknown]

NARRATIVE: CASE EVENT DATE: 201804
